FAERS Safety Report 9380735 (Version 3)
Quarter: 2013Q3

REPORT INFORMATION
  Report Type: Report from Study
  Country: DE (occurrence: DE)
  Receive Date: 20130702
  Receipt Date: 20130809
  Transmission Date: 20140515
  Serious: Yes (Hospitalization, Other)
  Sender: FDA-Public Use
  Company Number: DE-ABBOTT-13P-062-1114107-00

PATIENT
  Age: 59 Year
  Sex: Male

DRUGS (2)
  1. TRENANTONE [Suspect]
     Indication: PROSTATE CANCER
     Route: 058
     Dates: start: 20120712, end: 20130123
  2. DOCETAXEL [Concomitant]
     Indication: CHEMOTHERAPY

REACTIONS (4)
  - Cachexia [Unknown]
  - Pneumonia [Unknown]
  - Prostate cancer [Unknown]
  - Urinary retention [Unknown]
